FAERS Safety Report 13546910 (Version 5)
Quarter: 2021Q1

REPORT INFORMATION
  Report Type: Spontaneous
  Country: US (occurrence: US)
  Receive Date: 20170515
  Receipt Date: 20210112
  Transmission Date: 20210419
  Serious: Yes (Hospitalization, Other)
  Sender: FDA-Public Use
  Company Number: US-PFIZER INC-2017207844

PATIENT
  Age: 67 Year
  Sex: Female
  Weight: 85.26 kg

DRUGS (2)
  1. REVATIO [Suspect]
     Active Substance: SILDENAFIL CITRATE
     Indication: PULMONARY ARTERIAL HYPERTENSION
     Dosage: 20 MG, 3X/DAY
     Route: 048
     Dates: start: 2012
  2. REVATIO [Suspect]
     Active Substance: SILDENAFIL CITRATE
     Indication: PULMONARY HYPERTENSION
     Dosage: 20 MG TABLET, ONCE A DAY

REACTIONS (9)
  - Peripheral swelling [Recovering/Resolving]
  - Fluid retention [Recovering/Resolving]
  - Fall [Unknown]
  - Spinal fracture [Unknown]
  - Lower limb fracture [Unknown]
  - Joint swelling [Recovering/Resolving]
  - Oxygen saturation decreased [Recovering/Resolving]
  - Abdominal distension [Recovering/Resolving]
  - Dyspnoea [Recovering/Resolving]

NARRATIVE: CASE EVENT DATE: 201612
